FAERS Safety Report 4484519-3 (Version None)
Quarter: 2004Q3

REPORT INFORMATION
  Report Type: 
  Country: None (occurrence: None)
  Receive Date: 20040921
  Receipt Date: 20031208
  Transmission Date: 20050211
  Serious: Yes (Hospitalization)
  Sender: FDA-Public Use
  Company Number: 163-20785-03120196

PATIENT
  Age: 76 Year
  Sex: Female
  Weight: 58.3 kg

DRUGS (2)
  1. THALOMID [Suspect]
     Indication: METASTASES TO CENTRAL NERVOUS SYSTEM
     Dosage: 400 MG, AT BEDTIME, ORAL
     Route: 048
     Dates: start: 20030925, end: 20031030
  2. RADIATION [Suspect]
     Indication: METASTASES TO CENTRAL NERVOUS SYSTEM
     Dosage: 2.5GY ON DAYS 1-5, EVERY WEEK
     Dates: start: 20030925, end: 20031016

REACTIONS (10)
  - BALANCE DISORDER [None]
  - COAGULOPATHY [None]
  - DIARRHOEA [None]
  - DISEASE PROGRESSION [None]
  - HYPOACUSIS [None]
  - HYPOAESTHESIA [None]
  - LABORATORY TEST ABNORMAL [None]
  - NAUSEA [None]
  - PERIPHERAL SENSORY NEUROPATHY [None]
  - TRANSIENT ISCHAEMIC ATTACK [None]
